FAERS Safety Report 5711814-X (Version None)
Quarter: 2008Q2

REPORT INFORMATION
  Report Type: 
  Country: None (occurrence: None)
  Receive Date: 20080421
  Receipt Date: 20080409
  Transmission Date: 20081010
  Serious: Yes (Other)
  Sender: FDA-Public Use
  Company Number: CN-PFIZER INC-2008031595

PATIENT
  Age: 58 Year
  Sex: Male
  Weight: 65 kg

DRUGS (2)
  1. ZYVOX [Suspect]
     Indication: STAPHYLOCOCCAL INFECTION
     Route: 042
     Dates: start: 20080324, end: 20080329
  2. OMEPRAZOLE [Concomitant]

REACTIONS (3)
  - ANAEMIA [None]
  - BLINDNESS [None]
  - LOSS OF CONSCIOUSNESS [None]
